FAERS Safety Report 5953509-3 (Version None)
Quarter: 2008Q4

REPORT INFORMATION
  Report Type: 
  Country: None (occurrence: None)
  Receive Date: 20081031
  Receipt Date: 20080606
  Transmission Date: 20090506
  Serious: No
  Sender: FDA-Public Use
  Company Number: 2008PV035688

PATIENT
  Age: 22 Year
  Sex: Female
  Weight: 102.0593 kg

DRUGS (4)
  1. SYMLIN [Suspect]
     Indication: TYPE 1 DIABETES MELLITUS
     Dosage: 90 MCG; TID; SC, 33 MCG; TID; SC
     Route: 058
     Dates: start: 20061201, end: 20070301
  2. SYMLIN [Suspect]
     Indication: TYPE 1 DIABETES MELLITUS
     Dosage: 90 MCG; TID; SC, 33 MCG; TID; SC
     Route: 058
     Dates: start: 20071201, end: 20080123
  3. NOVOLOG [Concomitant]
  4. LEVIMIR [Concomitant]

REACTIONS (6)
  - DIABETES MELLITUS INADEQUATE CONTROL [None]
  - DIARRHOEA [None]
  - DRUG EXPOSURE DURING PREGNANCY [None]
  - INFLUENZA [None]
  - NAUSEA [None]
  - VOMITING [None]
